FAERS Safety Report 7156714-6 (Version None)
Quarter: 2010Q4

REPORT INFORMATION
  Report Type: 
  Country: None (occurrence: None)
  Receive Date: 20101214
  Receipt Date: 20091208
  Transmission Date: 20110411
  Serious: No
  Sender: FDA-Public Use
  Company Number: US-ASTRAZENECA-2009SE29884

PATIENT
  Age: 64 Year
  Sex: Female
  Weight: 86.2 kg

DRUGS (2)
  1. CRESTOR [Suspect]
     Route: 048
     Dates: end: 20091201
  2. WARFARIN SODIUM [Concomitant]

REACTIONS (2)
  - ABDOMINAL PAIN [None]
  - DYSPEPSIA [None]
